FAERS Safety Report 22128938 (Version 12)
Quarter: 2023Q4

REPORT INFORMATION
  Report Type: Spontaneous
  Country: US (occurrence: US)
  Receive Date: 20230323
  Receipt Date: 20231219
  Transmission Date: 20240110
  Serious: Yes (Hospitalization, Other)
  Sender: FDA-Public Use
  Company Number: US-GLAXOSMITHKLINE-US2023AMR039867

PATIENT

DRUGS (3)
  1. ZEJULA [Suspect]
     Active Substance: NIRAPARIB
     Indication: Ovarian cancer
     Dosage: 300 MG, QD
     Dates: start: 20230303
  2. ZEJULA [Suspect]
     Active Substance: NIRAPARIB
     Dosage: 200 MG, QD
     Dates: start: 202306
  3. ZEJULA [Suspect]
     Active Substance: NIRAPARIB
     Indication: Ovarian cancer
     Dosage: 200 MG, QD

REACTIONS (20)
  - Haemoglobin decreased [Not Recovered/Not Resolved]
  - Red blood cell count decreased [Unknown]
  - Malignant neoplasm progression [Unknown]
  - Ovarian cancer recurrent [Unknown]
  - Surgery [Unknown]
  - Thirst [Not Recovered/Not Resolved]
  - Memory impairment [Unknown]
  - Oral herpes [Recovering/Resolving]
  - Abnormal behaviour [Recovering/Resolving]
  - Vomiting [Unknown]
  - Headache [Unknown]
  - Dehydration [Unknown]
  - Fatigue [Unknown]
  - Anaemia [Unknown]
  - Discomfort [Unknown]
  - Nocturia [Unknown]
  - Product dose omission in error [Unknown]
  - Product prescribing error [Unknown]
  - Product use issue [Unknown]
  - Extra dose administered [Unknown]

NARRATIVE: CASE EVENT DATE: 20230301
